FAERS Safety Report 18136786 (Version 1)
Quarter: 2020Q3

REPORT INFORMATION
  Report Type: Report from Study
  Country: None (occurrence: US)
  Receive Date: 20200812
  Receipt Date: 20200812
  Transmission Date: 20201103
  Serious: Yes (Hospitalization)
  Sender: FDA-Public Use
  Company Number: US-ABBVIE-19K-163-2701766-00

PATIENT
  Age: 65 Year
  Sex: Male
  Weight: 81.72 kg

DRUGS (6)
  1. HUMIRA [Suspect]
     Active Substance: ADALIMUMAB
     Indication: PSORIASIS
     Route: 058
     Dates: start: 20190302, end: 20190501
  2. HUMIRA [Suspect]
     Active Substance: ADALIMUMAB
     Indication: PSORIATIC ARTHROPATHY
     Route: 058
     Dates: start: 20190220, end: 2019
  3. HUMIRA [Suspect]
     Active Substance: ADALIMUMAB
     Route: 058
     Dates: start: 20191016
  4. NABUMETONE. [Concomitant]
     Active Substance: NABUMETONE
     Indication: RHEUMATOID ARTHRITIS
  5. METFORMIN [Concomitant]
     Active Substance: METFORMIN HYDROCHLORIDE
     Indication: DIABETES MELLITUS
  6. HUMIRA [Suspect]
     Active Substance: ADALIMUMAB
     Indication: RHEUMATOID ARTHRITIS
     Route: 058
     Dates: start: 2018

REACTIONS (25)
  - Thirst [Recovering/Resolving]
  - Nausea [Unknown]
  - Hypoaesthesia [Unknown]
  - Rhinorrhoea [Unknown]
  - Diarrhoea [Unknown]
  - Joint stiffness [Recovering/Resolving]
  - Arthralgia [Not Recovered/Not Resolved]
  - Hypertension [Not Recovered/Not Resolved]
  - Joint swelling [Recovering/Resolving]
  - Pain in extremity [Unknown]
  - Pain [Unknown]
  - Coronary artery occlusion [Recovered/Resolved]
  - Chest pain [Recovered/Resolved]
  - Mobility decreased [Not Recovered/Not Resolved]
  - Muscle spasms [Unknown]
  - Headache [Not Recovered/Not Resolved]
  - Arthralgia [Recovered/Resolved]
  - Pain [Not Recovered/Not Resolved]
  - Epistaxis [Unknown]
  - Contusion [Recovered/Resolved]
  - Therapeutic product effect incomplete [Recovering/Resolving]
  - Gait disturbance [Recovering/Resolving]
  - Loss of personal independence in daily activities [Not Recovered/Not Resolved]
  - Joint stiffness [Recovered/Resolved]
  - Cough [Unknown]

NARRATIVE: CASE EVENT DATE: 2019
